FAERS Safety Report 9261982 (Version 1)
Quarter: 2013Q2

REPORT INFORMATION
  Report Type: Spontaneous
  Country: US (occurrence: US)
  Receive Date: 20130429
  Receipt Date: 20130429
  Transmission Date: 20140414
  Serious: Yes (Hospitalization)
  Sender: FDA-Public Use
  Company Number: US-MYLANLABS-2013S1008779

PATIENT
  Age: 68 Year
  Sex: Female

DRUGS (5)
  1. ALLOPURINOL [Suspect]
     Route: 065
  2. MYCOPHENOLATE MOFETIL [Suspect]
     Indication: STEVENS-JOHNSON SYNDROME
     Route: 065
  3. NESIRITIDE [Concomitant]
     Indication: MYOCARDITIS
     Dosage: INFUSION
     Route: 050
  4. DOBUTAMINE [Concomitant]
     Indication: MYOCARDITIS
     Dosage: INFUSION
     Route: 050
  5. AZATHIOPRINE [Concomitant]
     Indication: MYOCARDITIS
     Route: 065

REACTIONS (2)
  - Stevens-Johnson syndrome [Recovered/Resolved]
  - Myocarditis [Recovering/Resolving]
